FAERS Safety Report 7670758-7 (Version None)
Quarter: 2011Q3

REPORT INFORMATION
  Report Type: 
  Country: None (occurrence: None)
  Receive Date: 20110803
  Receipt Date: 20110720
  Transmission Date: 20111222
  Serious: Yes (Hospitalization)
  Sender: FDA-Public Use
  Company Number: TPA2011A04252

PATIENT
  Age: 75 Year
  Sex: Male

DRUGS (3)
  1. LIPITOR [Concomitant]
  2. HUMALOG MIX 75/25 (INSULIN LISPRO PROTAMINE SUSPENSION) [Suspect]
     Indication: DIABETES MELLITUS
     Dosage: 60 U, BID; 40 U, BID
     Dates: start: 19960101
  3. ACTOS [Suspect]
     Indication: DIABETES MELLITUS

REACTIONS (2)
  - AMNESIA [None]
  - CEREBROVASCULAR ACCIDENT [None]
